FAERS Safety Report 7452100-X (Version None)
Quarter: 2011Q2

REPORT INFORMATION
  Report Type: 
  Country: None (occurrence: None)
  Receive Date: 20110502
  Receipt Date: 20110418
  Transmission Date: 20111010
  Serious: Yes (Hospitalization)
  Sender: FDA-Public Use
  Company Number: NL-JNJFOC-20110208298

PATIENT
  Age: 29 Year
  Sex: Female
  Weight: 64 kg

DRUGS (16)
  1. FENTANYL [Concomitant]
     Indication: ABDOMINAL PAIN
  2. TRAMADOL [Concomitant]
     Indication: ABDOMINAL PAIN
  3. OXYCODON [Concomitant]
  4. NADROPARIN [Concomitant]
     Indication: PROPHYLAXIS
     Dosage: 2850 IE ONCE
  5. PARACETAMOL [Concomitant]
     Indication: HEADACHE
  6. PARACETAMOL [Concomitant]
  7. REMICADE [Suspect]
     Indication: CROHN'S DISEASE
     Route: 042
  8. NUVARING [Concomitant]
  9. REMICADE [Suspect]
     Indication: COLITIS ULCERATIVE
     Route: 042
  10. METHADON [Concomitant]
     Indication: PROCEDURAL PAIN
  11. PARACETAMOL [Concomitant]
  12. PARACETAMOL [Concomitant]
     Indication: ABDOMINAL PAIN
  13. MESALAZINE [Concomitant]
     Indication: COLITIS ULCERATIVE
  14. MESALAZINE [Concomitant]
  15. OXYCODON [Concomitant]
  16. PANTOPRAZOLE SODIUM [Concomitant]

REACTIONS (6)
  - COLITIS ULCERATIVE [None]
  - HOSPITALISATION [None]
  - COLECTOMY [None]
  - CONDITION AGGRAVATED [None]
  - PROCTOCOLECTOMY [None]
  - COLOSTOMY [None]
